FAERS Safety Report 15312151 (Version 1)
Quarter: 2018Q3

REPORT INFORMATION
  Report Type: Spontaneous
  Country: GB (occurrence: GB)
  Receive Date: 20180823
  Receipt Date: 20180823
  Transmission Date: 20181010
  Serious: Yes (Other)
  Sender: FDA-Public Use
  Company Number: GB-009507513-2012SP000834

PATIENT
  Age: 23 Year
  Sex: Female
  Weight: 87 kg

DRUGS (3)
  1. SERTRALINE HYDROCHLORIDE. [Concomitant]
     Active Substance: SERTRALINE HYDROCHLORIDE
     Indication: PRODUCT USED FOR UNKNOWN INDICATION
     Dosage: DOSAGE: 1/1 DAYS
     Route: 048
  2. NEXPLANON [Suspect]
     Active Substance: ETONOGESTREL
     Indication: PRODUCT USED FOR UNKNOWN INDICATION
     Dosage: 68 MG, UNK
     Route: 059
     Dates: start: 20110629
  3. NEXPLANON [Suspect]
     Active Substance: ETONOGESTREL
     Indication: PRODUCT USED FOR UNKNOWN INDICATION

REACTIONS (2)
  - Pregnancy with implant contraceptive [Recovered/Resolved]
  - Abortion spontaneous [Unknown]

NARRATIVE: CASE EVENT DATE: 20111111
